FAERS Safety Report 17124275 (Version 2)
Quarter: 2020Q1

REPORT INFORMATION
  Report Type: Spontaneous
  Country: US (occurrence: US)
  Receive Date: 20191206
  Receipt Date: 20200106
  Transmission Date: 20200409
  Serious: Yes (Other)
  Sender: FDA-Public Use
  Company Number: US-PFIZER INC-2019525448

PATIENT
  Age: 61 Year
  Sex: Female

DRUGS (2)
  1. SUTENT [Suspect]
     Active Substance: SUNITINIB MALATE
     Indication: METASTATIC RENAL CELL CARCINOMA
     Dosage: 50 MG, UNK
  2. SUTENT [Suspect]
     Active Substance: SUNITINIB MALATE
     Dosage: 37.5 MG, CYCLIC [1 CAP(S) ORALLY ONCE A DAY X 28 DAYS ON AND 14 DAYS OFF (42 DAY CYCLE)]
     Route: 048

REACTIONS (3)
  - Neoplasm progression [Unknown]
  - Vaginal haemorrhage [Unknown]
  - Back pain [Unknown]
